FAERS Safety Report 23669502 (Version 2)
Quarter: 2024Q1

REPORT INFORMATION
  Report Type: Spontaneous
  Country: CN (occurrence: CN)
  Receive Date: 20240325
  Receipt Date: 20240327
  Transmission Date: 20240410
  Serious: No
  Sender: FDA-Public Use
  Company Number: CN-ORGANON-O2403CHN002357

PATIENT
  Age: 56 Year
  Sex: Female
  Weight: 70 kg

DRUGS (2)
  1. MONTELUKAST SODIUM [Suspect]
     Active Substance: MONTELUKAST SODIUM
     Indication: Asthma
     Dosage: 10 MILLIGRAM, QD
     Route: 048
     Dates: start: 20220508, end: 20220521
  2. SPIRONOLACTONE [Suspect]
     Active Substance: SPIRONOLACTONE
     Indication: Asthma
     Dosage: UNK
     Route: 048

REACTIONS (1)
  - Drug ineffective [Unknown]
